FAERS Safety Report 9843534 (Version 1)
Quarter: 2013Q4

REPORT INFORMATION
  Report Type: Spontaneous
  Country: US (occurrence: None)
  Receive Date: 20131219
  Receipt Date: 20131219
  Transmission Date: 20140711
  Serious: Yes (Other)
  Sender: FDA-Public Use
  Company Number: 163-20785-13060837

PATIENT
  Age: 67 Year
  Sex: Female

DRUGS (10)
  1. THALOMID [Suspect]
     Indication: PLASMA CELL MYELOMA
     Route: 048
     Dates: start: 201303
  2. SINGULAIR (MONTELUKAST SODIUM) (10 MILLIGRAM, TABLETS) [Concomitant]
  3. ZOMETA (ZOLEDRONIC ACID) (INJECTION) [Concomitant]
  4. OCEAN (OCEAN) (0.65 PERCENT, NASAL DROPS (INCLUDING NASAL SPRAY) [Concomitant]
  5. TESSALON PERLE (BENZONATATE) (100 MILLIGRAM, CAPSULES) [Concomitant]
  6. LEVOCETIRIZINE (LEVOCETIRIZINE) (5 MILLIGRAM, TABLETS) [Concomitant]
  7. CHERATUSSIN AC (CHERATUSSIN AC) (SYRUP) [Concomitant]
  8. DEXAMETHASONE (DEXAMETHASONE) (4 MILLIGRAM, TABLETS) [Concomitant]
  9. OMEPRAZOLE (OMEPRAZOLE) (20 MILLIGRAM, TABLETS) [Concomitant]
  10. SYNTHROID (LEVOTHYROXINE SODIUM) (75 MICROGRAM, TABLETS) [Concomitant]

REACTIONS (4)
  - Dry skin [None]
  - Rash [None]
  - Rash [None]
  - Cough [None]
